FAERS Safety Report 7894747-2 (Version None)
Quarter: 2011Q4

REPORT INFORMATION
  Report Type: 
  Country: None (occurrence: None)
  Receive Date: 20111106
  Receipt Date: 20110818
  Transmission Date: 20120403
  Serious: No
  Sender: FDA-Public Use
  Company Number: US-AMGEN-USASP2011042277

PATIENT
  Sex: Male
  Weight: 80.726 kg

DRUGS (5)
  1. ALEVE [Concomitant]
  2. FOLIC ACID [Concomitant]
  3. ENBREL [Suspect]
     Indication: PRODUCT USED FOR UNKNOWN INDICATION
     Dosage: 50 MG, QWK
  4. VITAMIN D [Concomitant]
  5. METHOTREXATE [Concomitant]

REACTIONS (1)
  - ARTHROPOD BITE [None]
